FAERS Safety Report 7501512-4 (Version None)
Quarter: 2011Q2

REPORT INFORMATION
  Report Type: 
  Country: None (occurrence: None)
  Receive Date: 20110524
  Receipt Date: 20110511
  Transmission Date: 20111010
  Serious: Yes (Other)
  Sender: FDA-Public Use
  Company Number: PHEH2008US02660

PATIENT
  Sex: Female

DRUGS (55)
  1. LOVENOX [Concomitant]
  2. CIPROFLOXACIN [Concomitant]
  3. METRONIDAZOLE [Concomitant]
  4. WARFARIN SODIUM [Concomitant]
  5. CLOTRIMAZOLE [Concomitant]
  6. ATENOLOL [Concomitant]
     Dosage: 100 MG, QD
     Route: 048
  7. ZOMETA [Suspect]
     Dosage: UNK
  8. DOCUSATE [Concomitant]
  9. NYSTATIN [Concomitant]
  10. OMEPRAZOLE [Concomitant]
  11. IBUPROFEN [Concomitant]
     Indication: PAIN
     Dosage: 400 MG, Q6H
     Route: 048
  12. FEMARA [Concomitant]
  13. SENOKOT                                 /UNK/ [Concomitant]
  14. LIPOSYN [Concomitant]
  15. SANDOSTATIN [Concomitant]
  16. FUROSEMIDE [Concomitant]
  17. CLINDAMYCIN [Concomitant]
     Dosage: 150 MG, QID
     Route: 048
  18. MYCELEX [Concomitant]
  19. FASLODEX [Concomitant]
  20. RADIATION [Concomitant]
  21. ROXANOL [Concomitant]
  22. HUMALOG [Concomitant]
  23. NIFEDIAC [Concomitant]
     Dosage: 60 MG, QD
     Route: 048
  24. FLAGYL [Concomitant]
  25. DILAUDID [Concomitant]
  26. DIFLUCAN [Concomitant]
  27. CHEMOTHERAPEUTICS NOS [Concomitant]
  28. ACETAMINOPHEN AND HYDROCODONE BITARTRATE [Concomitant]
  29. LOTENSIN [Concomitant]
     Dosage: 40 MG, UNK
     Route: 048
  30. GLIPIZIDE [Concomitant]
     Dosage: 1 DF, QD
     Route: 048
  31. NARCAN [Concomitant]
  32. FLUCONAZOLE [Concomitant]
  33. ERYTHROMYCIN [Concomitant]
     Dosage: 250 MG, UNK
     Route: 048
  34. PLENDIL [Concomitant]
     Indication: HYPERTENSION
     Dosage: 5 MG, QD
     Route: 048
  35. AREDIA [Suspect]
     Dosage: UNK
     Dates: start: 20010401
  36. FENTANYL [Concomitant]
  37. ZYRTEC [Concomitant]
  38. AMBIEN [Concomitant]
  39. CORDARONE [Concomitant]
  40. INAPSINE [Concomitant]
  41. XELODA [Concomitant]
     Dosage: 500 MG, BID
     Route: 048
  42. ARIMIDEX [Concomitant]
     Dosage: 1 MG, QD
     Route: 048
  43. LEXAPRO [Concomitant]
  44. BENAZEPRIL HYDROCHLORIDE [Concomitant]
     Dosage: 1 DF, QD
     Route: 048
  45. CLINDAMYCIN [Concomitant]
     Dosage: 150 MG, Q6H
     Route: 048
  46. COUMADIN [Suspect]
  47. SIMVASTATIN [Concomitant]
  48. RESTORIL [Concomitant]
  49. CARDIZEM [Concomitant]
  50. OXYCONTIN [Concomitant]
  51. GENTAMICIN [Concomitant]
  52. ACETAMINOPHEN W/ CODEINE [Concomitant]
  53. DOCUSATE SODIUM [Concomitant]
  54. LISINOPRIL [Concomitant]
  55. ALLEGRA [Concomitant]
     Dosage: 1 DF, BID
     Route: 048

REACTIONS (65)
  - DISABILITY [None]
  - PAIN [None]
  - JAW DISORDER [None]
  - INTESTINAL FUNCTIONAL DISORDER [None]
  - TYPE 2 DIABETES MELLITUS [None]
  - PULMONARY HYPERTENSION [None]
  - SEPSIS [None]
  - CONTUSION [None]
  - PULMONARY CONGESTION [None]
  - ARTHRALGIA [None]
  - INFECTION [None]
  - ISCHAEMIC CARDIOMYOPATHY [None]
  - EJECTION FRACTION DECREASED [None]
  - ANHEDONIA [None]
  - IMPAIRED HEALING [None]
  - HAEMORRHAGE [None]
  - SCIATICA [None]
  - LUNG INFILTRATION [None]
  - ARTERIOSCLEROSIS [None]
  - ANAEMIA [None]
  - NEOPLASM MALIGNANT [None]
  - CONVULSION [None]
  - MITRAL VALVE INCOMPETENCE [None]
  - ADRENAL MASS [None]
  - DIVERTICULITIS [None]
  - ANXIETY [None]
  - HYPERTENSION [None]
  - EXOSTOSIS [None]
  - BONE DEVELOPMENT ABNORMAL [None]
  - CONSTIPATION [None]
  - PYREXIA [None]
  - OSTEONECROSIS OF JAW [None]
  - TOOTH LOSS [None]
  - VENTRICULAR FIBRILLATION [None]
  - DEEP VEIN THROMBOSIS [None]
  - METASTASES TO BONE [None]
  - CARDIAC FAILURE CONGESTIVE [None]
  - PULMONARY OEDEMA [None]
  - OSTEOARTHRITIS [None]
  - PLEURAL EFFUSION [None]
  - HYPERLIPIDAEMIA [None]
  - CORONARY ARTERY DISEASE [None]
  - INSOMNIA [None]
  - RENAL FAILURE [None]
  - SWELLING [None]
  - FEMUR FRACTURE [None]
  - BACTERIAL DISEASE CARRIER [None]
  - ATELECTASIS [None]
  - ASTHENIA [None]
  - PATHOLOGICAL FRACTURE [None]
  - OSTEOPENIA [None]
  - BONE DISORDER [None]
  - ATRIAL FIBRILLATION [None]
  - VENTRICULAR TACHYCARDIA [None]
  - SYNCOPE [None]
  - ENTEROCUTANEOUS FISTULA [None]
  - CHEST PAIN [None]
  - CARDIOMEGALY [None]
  - WOUND INFECTION [None]
  - INJURY [None]
  - HYPOKALAEMIA [None]
  - GASTROOESOPHAGEAL REFLUX DISEASE [None]
  - RASH PRURITIC [None]
  - HIATUS HERNIA [None]
  - CARDIAC ANEURYSM [None]
